FAERS Safety Report 24336619 (Version 1)
Quarter: 2024Q3

REPORT INFORMATION
  Report Type: Spontaneous
  Country: JP (occurrence: JP)
  Receive Date: 20240919
  Receipt Date: 20240919
  Transmission Date: 20241016
  Serious: No
  Sender: ROCHE
  Company Number: JP-CHUGAI-2023046614

PATIENT
  Age: 4 Year
  Sex: Male

DRUGS (21)
  1. TAMIFLU [Suspect]
     Active Substance: OSELTAMIVIR PHOSPHATE
     Indication: Antiviral prophylaxis
     Dosage: 25 MILLIGRAM, QD,ADMINISTRATION ROUTE: GASTRIC FISTULA
     Route: 065
     Dates: start: 20231201, end: 20231204
  2. TAMIFLU [Suspect]
     Active Substance: OSELTAMIVIR PHOSPHATE
     Indication: Influenza
     Dosage: 25 MILLIGRAM, BID
     Route: 065
     Dates: start: 20231205, end: 20231209
  3. MYSTAN [Concomitant]
     Active Substance: CLOBAZAM
     Dosage: 0.25 GRAM, BID,IN THE MORNING, AND BEFORE GOING TO BED,ADMINISTRATION ROUTE: GASTRIC FISTULA
  4. DEPAKENE [Concomitant]
     Active Substance: VALPROIC ACID
     Dosage: 1 GRAM, BID,IN THE MORNING, AND BEFORE GOING TO BED,ADMINISTRATION ROUTE: GASTRIC FISTULA
  5. TIZANIDINE [Concomitant]
     Active Substance: TIZANIDINE
     Dosage: 1 GRAM, BID,IN THE MORNING, AND BEFORE GOING TO BED,ADMINISTRATION ROUTE: GASTRIC FISTULA
  6. MOSAPRIDE CITRATE [Concomitant]
     Active Substance: MOSAPRIDE CITRATE
     Dosage: 0.5 GRAM, BID,IN THE MORNING, AND BEFORE GOING TO BED,ADMINISTRATION ROUTE: GASTRIC FISTULA
  7. DANTRIUM [Concomitant]
     Active Substance: DANTROLENE SODIUM
     Dosage: 1 DOSAGE FORM, BID,IN THE MORNING, AND BEFORE GOING TO BED,ADMINISTRATION ROUTE: GASTRIC FISTULA
  8. LIORESAL [Concomitant]
     Active Substance: BACLOFEN
     Dosage: 1 DOSAGE FORM, BID,IN THE MORNING, AND BEFORE GOING TO BED,ADMINISTRATION ROUTE: GASTRIC FISTULA
  9. HERBALS [Concomitant]
     Active Substance: HERBALS
     Dosage: 3 GRAM, BID,IN THE MORNING, AND BEFORE GOING TO BED,ADMINISTRATION ROUTE: GASTRIC FISTULA
  10. LEVOCARNITINE [Concomitant]
     Active Substance: LEVOCARNITINE
     Dosage: 10 MILLILITER, BID,IN THE MORNING, AND BEFORE GOING TO BED,ADMINISTRATION ROUTE: GASTRIC FISTULA
  11. ROZEREM [Concomitant]
     Active Substance: RAMELTEON
     Dosage: 0.5 DOSAGE FORM, QD,BEFORE GOING TO BED,ADMINISTRATION ROUTE: GASTRIC FISTULA
  12. CERCINE [Concomitant]
     Active Substance: DIAZEPAM
     Dosage: 0.3 GRAM, QD,BEFORE GOING TO BED,ADMINISTRATION ROUTE: GASTRIC FISTULA
  13. TRICLOFOS SODIUM [Concomitant]
     Active Substance: TRICLOFOS SODIUM
     Dosage: 6 MILLILITER, QD,BEFORE GOING TO BED,ADMINISTRATION ROUTE: GASTRIC FISTULA
  14. SOLITA-T2 [Concomitant]
     Dosage: 1 DOSAGE FORM, QD,AT 9:00 PM,ADMINISTRATION ROUTE: GASTRIC FISTULA
  15. SOLITA-T2 [Concomitant]
     Dosage: 3 DOSAGE FORM, QID,AT 6:00 AM, 12:00 PM, 6:00 PM AND 11:00 PM,ADMINISTRATION ROUTE: GASTRIC FISTULA
     Dates: start: 20231011, end: 20231015
  16. SOLITA-T2 [Concomitant]
     Dosage: 2 DOSAGE FORM,SIX TIMES A DAY AT 6:00 AM, 10:00 AM, 12:00 PM, 3:00 PM, 6:00 PM AND 11:00 PM ADMINIST
  17. RINDERON VG [Concomitant]
     Active Substance: BETAMETHASONE VALERATE\GENTAMICIN SULFATE
     Dosage: UNK, QD,GASTRIC FISTULA
     Dates: start: 20231016
  18. AZUNOL [Concomitant]
     Dosage: 20 GRAM, QD,IN DIAPER
     Dates: start: 20231011
  19. MIYA-BM [Concomitant]
     Active Substance: CLOSTRIDIUM BUTYRICUM SPORES STRAIN M-55
     Dosage: 1 GRAM, TID,ADMINISTRATION ROUTE: GASTRIC FISTULA
     Dates: start: 20231013, end: 20231019
  20. ZINC OXIDE [Concomitant]
     Active Substance: ZINC OXIDE
     Dosage: 20 GRAM, QD,IN DIAPER
     Dates: start: 20231011
  21. MOVICOL [Concomitant]
     Active Substance: POLYETHYLENE GLYCOL 3350\POTASSIUM CHLORIDE\SODIUM BICARBONATE\SODIUM CHLORIDE
     Dosage: 1 DOSAGE FORM, QD
     Dates: start: 20231030

REACTIONS (1)
  - Influenza [Unknown]

NARRATIVE: CASE EVENT DATE: 20231205
